FAERS Safety Report 8888244 (Version 2)
Quarter: 2013Q1

REPORT INFORMATION
  Report Type: Spontaneous
  Country: DE (occurrence: DE)
  Receive Date: 20121106
  Receipt Date: 20130217
  Transmission Date: 20140127
  Serious: Yes (Other)
  Sender: FDA-Public Use
  Company Number: DE-JNJFOC-20121101798

PATIENT
  Sex: Male
  Weight: 78 kg

DRUGS (4)
  1. XARELTO [Suspect]
     Indication: EMBOLISM VENOUS
     Route: 048
     Dates: start: 20120504, end: 20120603
  2. XARELTO [Suspect]
     Indication: PORTAL VEIN THROMBOSIS
     Route: 048
     Dates: start: 20120504, end: 20120603
  3. BLOPRESS [Concomitant]
     Indication: PRODUCT USED FOR UNKNOWN INDICATION
     Route: 048
  4. PANTOZOL [Concomitant]
     Indication: PRODUCT USED FOR UNKNOWN INDICATION
     Route: 048

REACTIONS (2)
  - Chest discomfort [Recovered/Resolved]
  - Respiratory distress [Recovered/Resolved]
